FAERS Safety Report 9190314 (Version 1)
Quarter: 2013Q1

REPORT INFORMATION
  Report Type: Spontaneous
  Country: US (occurrence: US)
  Receive Date: 20130326
  Receipt Date: 20130326
  Transmission Date: 20140127
  Serious: Yes (Hospitalization)
  Sender: FDA-Public Use
  Company Number: US-BAYER-2013-036768

PATIENT
  Age: 47 Year
  Sex: Female

DRUGS (3)
  1. YAZ [Suspect]
     Indication: OVARIAN CYST
  2. TYLENOL [Concomitant]
     Indication: PLEURITIC PAIN
  3. MOTRIN [Concomitant]
     Indication: PLEURITIC PAIN

REACTIONS (1)
  - Pulmonary embolism [Recovered/Resolved]
